FAERS Safety Report 10211593 (Version 7)
Quarter: 2018Q1

REPORT INFORMATION
  Report Type: Report from Study
  Country: US (occurrence: US)
  Receive Date: 20140602
  Receipt Date: 20180305
  Transmission Date: 20180508
  Serious: Yes (Death, Hospitalization)
  Sender: FDA-Public Use
  Company Number: US-ACTELION-A-US2014-94008

PATIENT
  Age: 61 Year
  Sex: Female
  Weight: 97.51 kg

DRUGS (25)
  1. SILDENAFIL. [Concomitant]
     Active Substance: SILDENAFIL
  2. MAGNESIUM [Concomitant]
     Active Substance: MAGNESIUM
  3. VICTOZA [Concomitant]
     Active Substance: LIRAGLUTIDE
  4. LOSARTAN. [Concomitant]
     Active Substance: LOSARTAN
  5. METOLAZONE. [Concomitant]
     Active Substance: METOLAZONE
  6. MORPHINE [Concomitant]
     Active Substance: MORPHINE
  7. POTASSIUM CHLORIDE. [Concomitant]
     Active Substance: POTASSIUM CHLORIDE
  8. CRESTOR [Concomitant]
     Active Substance: ROSUVASTATIN CALCIUM
  9. PLAVIX [Concomitant]
     Active Substance: CLOPIDOGREL BISULFATE
  10. ALPRAZOLAM. [Concomitant]
     Active Substance: ALPRAZOLAM
  11. FUROSEMIDE. [Concomitant]
     Active Substance: FUROSEMIDE
     Dosage: UNK
     Route: 042
  12. CHOLECALCIFEROL [Concomitant]
     Active Substance: CHOLECALCIFEROL
  13. ASPIRIN. [Concomitant]
     Active Substance: ASPIRIN
  14. ALBUTEROL W/IPRATROPIUM [Concomitant]
     Active Substance: ALBUTEROL\IPRATROPIUM
  15. LORATADINE. [Concomitant]
     Active Substance: LORATADINE
  16. NYSTATIN. [Concomitant]
     Active Substance: NYSTATIN
  17. ALBUTEROL. [Concomitant]
     Active Substance: ALBUTEROL
  18. CITALOPRAM [Concomitant]
     Active Substance: CITALOPRAM HYDROBROMIDE
  19. SPIRONOLACTONE. [Concomitant]
     Active Substance: SPIRONOLACTONE
  20. PANTOPRAZOLE [Concomitant]
     Active Substance: PANTOPRAZOLE
  21. TRACLEER [Suspect]
     Active Substance: BOSENTAN
     Indication: PULMONARY ARTERIAL HYPERTENSION
     Dosage: 125 MG, BID
     Route: 048
  22. ACETYLCYSTEINE. [Concomitant]
     Active Substance: ACETYLCYSTEINE
  23. GLIMEPIRIDE. [Concomitant]
     Active Substance: GLIMEPIRIDE
  24. MICONAZOLE. [Concomitant]
     Active Substance: MICONAZOLE
  25. FLUTICASONE. [Concomitant]
     Active Substance: FLUTICASONE

REACTIONS (12)
  - Metapneumovirus infection [Recovering/Resolving]
  - Pneumonia [Recovering/Resolving]
  - Respiratory failure [Fatal]
  - Sputum discoloured [Fatal]
  - Dyspnoea [Fatal]
  - Respiratory distress [Recovering/Resolving]
  - Chest discomfort [Fatal]
  - Hypoxia [Recovering/Resolving]
  - Influenza [Fatal]
  - Productive cough [Fatal]
  - Oxygen saturation decreased [Unknown]
  - Upper respiratory tract infection [Unknown]

NARRATIVE: CASE EVENT DATE: 20140517
